FAERS Safety Report 9528991 (Version 5)
Quarter: 2014Q1

REPORT INFORMATION
  Report Type: Spontaneous
  Country: US (occurrence: US)
  Receive Date: 20130917
  Receipt Date: 20140321
  Transmission Date: 20141002
  Serious: Yes (Hospitalization, Other)
  Sender: FDA-Public Use
  Company Number: US-PFIZER INC-2013130081

PATIENT
  Age: 45 Year
  Sex: Female

DRUGS (4)
  1. DILANTIN-125 [Suspect]
     Indication: CONVULSION
     Dosage: 100 MG, 3X/DAY
     Route: 048
     Dates: start: 20040116
  2. DILANTIN-125 [Suspect]
     Dosage: 200 MG, 2X/DAY
     Route: 048
     Dates: start: 20040123
  3. DILANTIN [Suspect]
     Indication: CONVULSION
     Dosage: 150 MG, 2X/DAY
     Route: 042
     Dates: start: 20040120
  4. DILANTIN [Suspect]
     Dosage: 500 MG, 1X/DAY
     Route: 042
     Dates: start: 20040123

REACTIONS (2)
  - Stevens-Johnson syndrome [Unknown]
  - Toxic epidermal necrolysis [Unknown]
